FAERS Safety Report 20262972 (Version 2)
Quarter: 2022Q1

REPORT INFORMATION
  Report Type: Report from Study
  Country: DE (occurrence: None)
  Receive Date: 20211231
  Receipt Date: 20220211
  Transmission Date: 20220423
  Serious: Yes (Hospitalization)
  Sender: FDA-Public Use
  Company Number: DE-ROCHE-2954582

PATIENT
  Age: 50 Year
  Sex: Female
  Weight: 75 kg

DRUGS (15)
  1. ATEZOLIZUMAB [Suspect]
     Active Substance: ATEZOLIZUMAB
     Indication: Triple negative breast cancer
     Dosage: ON 20/OCT/2021, LAST DOSE OF ATEZOLIZUMAB WAS ADMINISTERED.?PREVIOUS DOSE ON 10 NOV 2021
     Route: 041
     Dates: start: 20210616
  2. PACLITAXEL [Suspect]
     Active Substance: PACLITAXEL
     Indication: Triple negative breast cancer
     Dosage: ON 02/SEP/2021, LAST DOSE OF PACLITAXEL WAS ADMINISTERED.
     Route: 042
     Dates: start: 20210616
  3. CARBOPLATIN [Suspect]
     Active Substance: CARBOPLATIN
     Indication: Triple negative breast cancer
     Dosage: ON 02/SEP/2021. LAST DOSE OF CARBOPLATIN WAS ADMINISTERED.
     Route: 042
     Dates: start: 20210616
  4. EPIRUBICIN [Suspect]
     Active Substance: EPIRUBICIN
     Indication: Triple negative breast cancer
     Dosage: ON 20/OCT/2021, LAST DOSE OF EPIRUBICIN WAS ADMINISTERED.?MOST RECENT DOSE WAS ON10 NOV 2021
     Route: 042
     Dates: start: 20210908
  5. CYCLOPHOSPHAMIDE [Suspect]
     Active Substance: CYCLOPHOSPHAMIDE
     Indication: Triple negative breast cancer
     Dosage: ON 20/OCT/2021, LAST DOSE OF CYCLOPHOSPHAMIDE WAS ADMINISTERED.?RECNT DOSE WAS ON 10 NOV 2021
     Route: 042
     Dates: start: 20210908
  6. AKYNZEO [Concomitant]
     Active Substance: NETUPITANT\PALONOSETRON HYDROCHLORIDE
     Dates: start: 20210726, end: 20211110
  7. DEXAMETHASONE [Concomitant]
     Active Substance: DEXAMETHASONE
     Dates: start: 20210616, end: 20211110
  8. DIMETHINDENE MALEATE [Concomitant]
     Active Substance: DIMETHINDENE MALEATE
     Dates: start: 20210616, end: 20210902
  9. DIMETHINDENE [Concomitant]
     Active Substance: DIMETHINDENE
     Dates: start: 20210708, end: 20210902
  10. DEXAMETHASONE [Concomitant]
     Active Substance: DEXAMETHASONE
     Dates: start: 20210714, end: 20210719
  11. FULPHILA [PEGFILGRASTIM] [Concomitant]
     Dates: start: 20210802, end: 20211110
  12. OLANZAPINE [Concomitant]
     Active Substance: OLANZAPINE
     Dates: start: 20210802, end: 20211110
  13. METRONIDAZOLE [Concomitant]
     Active Substance: METRONIDAZOLE
     Dates: start: 201505, end: 20210902
  14. OMEPRAZOLE [Concomitant]
     Active Substance: OMEPRAZOLE
     Dates: start: 20210722
  15. IBUPROFEN [Concomitant]
     Active Substance: IBUPROFEN
     Dosage: 400 MG AS NEEDED
     Dates: start: 20210723

REACTIONS (3)
  - Neutropenia [Recovered/Resolved]
  - Anaemia [Recovered/Resolved]
  - Pancytopenia [Recovered/Resolved]

NARRATIVE: CASE EVENT DATE: 20211027
